FAERS Safety Report 20454845 (Version 1)
Quarter: 2022Q1

REPORT INFORMATION
  Report Type: Spontaneous
  Country: HN (occurrence: HN)
  Receive Date: 20220210
  Receipt Date: 20220210
  Transmission Date: 20220423
  Serious: Yes (Hospitalization)
  Sender: FDA-Public Use
  Company Number: HN-PFIZER INC-202200203995

PATIENT
  Age: 81 Year
  Sex: Female

DRUGS (2)
  1. LIPITOR [Suspect]
     Active Substance: ATORVASTATIN CALCIUM
     Dosage: 1 DF (PILL), DAILY
     Route: 048
     Dates: start: 2021
  2. NORVASC [Suspect]
     Active Substance: AMLODIPINE BESYLATE
     Dosage: 1 DF (PILL), DAILY
     Route: 048
     Dates: start: 2021

REACTIONS (2)
  - Hypertension [Unknown]
  - Diabetes mellitus [Unknown]
